FAERS Safety Report 6237892-X (Version None)
Quarter: 2009Q2

REPORT INFORMATION
  Report Type: 
  Country: None (occurrence: None)
  Receive Date: 20090620
  Receipt Date: 20090609
  Transmission Date: 20091009
  Serious: Yes (Hospitalization, Disabling)
  Sender: FDA-Public Use
  Company Number: US-SANOFI-SYNTHELABO-A03200804896

PATIENT
  Sex: Male
  Weight: 103.9 kg

DRUGS (4)
  1. ZOLOFT [Concomitant]
     Indication: DRUG USE FOR UNKNOWN INDICATION
     Route: 048
     Dates: start: 20061101
  2. AMBIEN [Suspect]
     Indication: DRUG USE FOR UNKNOWN INDICATION
     Route: 048
     Dates: start: 20060101
  3. ALCOHOL [Suspect]
     Indication: DRUG USE FOR UNKNOWN INDICATION
     Dosage: UNK
     Route: 048
     Dates: start: 20061201
  4. VASOTEC [Concomitant]
     Indication: DRUG USE FOR UNKNOWN INDICATION
     Dosage: UNK
     Route: 048

REACTIONS (32)
  - ACTIVATED PARTIAL THROMBOPLASTIN TIME SHORTENED [None]
  - AMNESIA [None]
  - ANHEDONIA [None]
  - BLINDNESS [None]
  - BLINDNESS UNILATERAL [None]
  - BLOOD ALCOHOL INCREASED [None]
  - BLOOD CALCIUM DECREASED [None]
  - BLOOD CHLORIDE DECREASED [None]
  - BLOOD GLUCOSE INCREASED [None]
  - BLOOD SODIUM DECREASED [None]
  - CARBON DIOXIDE DECREASED [None]
  - EXOPHTHALMOS [None]
  - EYE HAEMORRHAGE [None]
  - EYE PENETRATION [None]
  - FACIAL BONES FRACTURE [None]
  - GUN SHOT WOUND [None]
  - HAEMATOCRIT DECREASED [None]
  - HAEMOGLOBIN DECREASED [None]
  - IMPAIRED WORK ABILITY [None]
  - LYMPHOCYTE PERCENTAGE DECREASED [None]
  - MEAN PLATELET VOLUME DECREASED [None]
  - PAIN [None]
  - PLATELET COUNT INCREASED [None]
  - PNEUMOCEPHALUS [None]
  - POST PROCEDURAL PNEUMONIA [None]
  - RED BLOOD CELL COUNT DECREASED [None]
  - RESPIRATORY FAILURE [None]
  - SKULL FRACTURED BASE [None]
  - SUBDURAL HAEMATOMA [None]
  - TRAUMATIC BRAIN INJURY [None]
  - UNRESPONSIVE TO STIMULI [None]
  - WHITE BLOOD CELL COUNT INCREASED [None]
